FAERS Safety Report 6461989-2 (Version None)
Quarter: 2009Q4

REPORT INFORMATION
  Report Type: 
  Country: None (occurrence: None)
  Receive Date: 20091130
  Receipt Date: 20091116
  Transmission Date: 20100525
  Serious: Yes (Other)
  Sender: FDA-Public Use
  Company Number: US-BRACCO-003741

PATIENT
  Age: 59 Year
  Sex: Female

DRUGS (23)
  1. IRON [Concomitant]
  2. CELLCEPT [Concomitant]
     Indication: KIDNEY TRANSPLANT REJECTION
  3. CILOSTAZOL [Concomitant]
  4. MULTIHANCE [Suspect]
     Indication: NUCLEAR MAGNETIC RESONANCE IMAGING
     Route: 042
     Dates: start: 20050707, end: 20050707
  5. MULTIHANCE [Suspect]
     Indication: NUCLEAR MAGNETIC RESONANCE IMAGING ABDOMINAL
     Route: 042
     Dates: start: 20050707, end: 20050707
  6. EPOGEN [Concomitant]
  7. EVISTA [Concomitant]
  8. BABY ASPIRIN [Concomitant]
  9. PREDNISONE [Concomitant]
  10. LEVOTHYROXINE SODIUM [Concomitant]
  11. CONTRAST MEDIA [Suspect]
     Indication: NUCLEAR MAGNETIC RESONANCE IMAGING
     Route: 065
     Dates: start: 20070801, end: 20070801
  12. CONTRAST MEDIA [Suspect]
     Indication: NUCLEAR MAGNETIC RESONANCE IMAGING BRAIN
     Route: 065
     Dates: start: 20020820, end: 20020820
  13. CONTRAST MEDIA [Suspect]
     Route: 065
     Dates: start: 19980706, end: 19980706
  14. NEPHROCAPS [Concomitant]
  15. INSULIN [Concomitant]
  16. PROGRAF [Concomitant]
  17. SENSIPAR [Concomitant]
  18. RENAGEL [Concomitant]
  19. ZEMPLAR [Concomitant]
  20. PHOSLO [Concomitant]
  21. PLAVIX [Concomitant]
  22. VISIPAQUE [Concomitant]
     Indication: AORTOGRAM
     Route: 065
     Dates: start: 20050616, end: 20050616
  23. MAGNEVIST [Suspect]
     Indication: NUCLEAR MAGNETIC RESONANCE IMAGING
     Route: 065
     Dates: start: 19980824, end: 19980824

REACTIONS (1)
  - NEPHROGENIC SYSTEMIC FIBROSIS [None]
